FAERS Safety Report 7554616-4 (Version None)
Quarter: 2011Q2

REPORT INFORMATION
  Report Type: 
  Country: None (occurrence: None)
  Receive Date: 20110617
  Receipt Date: 20110607
  Transmission Date: 20111010
  Serious: Yes (Life-Threatening, Hospitalization)
  Sender: FDA-Public Use
  Company Number: US-ROCHE-783090

PATIENT
  Age: 67 Year
  Sex: Female

DRUGS (3)
  1. BEVACIZUMAB [Suspect]
     Dosage: FREQUENCY: INTRAVENOUS OVER 30-90 MINUTES ON DAY ONE BEGINING WITH CYCLE TWO.
     Route: 042
     Dates: start: 20100927
  2. PACLITAXEL [Suspect]
     Dosage: FREQUENCY: OVER ONE HOURS ON DAYS 1,8,15.LAST DOSE PRIOR TO SAE: 20 DEC 2010.
     Route: 042
     Dates: start: 20100927
  3. CARBOPLATIN [Suspect]
     Dosage: AUC 6 IP ON DAY ONE.LAST DOSE PRIOR TO SAE: 20 DEC 2010.
     Route: 042
     Dates: start: 20100927

REACTIONS (3)
  - SMALL INTESTINAL OBSTRUCTION [None]
  - NEUTROPHIL COUNT DECREASED [None]
  - WHITE BLOOD CELL COUNT DECREASED [None]
